FAERS Safety Report 9539878 (Version 1)
Quarter: 2013Q3

REPORT INFORMATION
  Report Type: Spontaneous
  Country: CN (occurrence: CN)
  Receive Date: 20130920
  Receipt Date: 20130920
  Transmission Date: 20140515
  Serious: Yes (Hospitalization)
  Sender: FDA-Public Use
  Company Number: CN-OTSUKA-JP-2013-13862

PATIENT
  Age: 76 Year
  Sex: Male
  Weight: 65 kg

DRUGS (3)
  1. PLETAAL [Suspect]
     Indication: PLATELET DISORDER
     Dosage: 100 MG MILLIGRAM(S), BID
     Route: 048
     Dates: start: 20111008, end: 20111014
  2. LOSARTAN POTASSIUM [Concomitant]
     Dosage: UNK
     Dates: start: 20111008
  3. TRIMETAZIDINE [Concomitant]
     Dosage: UNK
     Dates: start: 20111008

REACTIONS (1)
  - Arrhythmia [Recovered/Resolved]
